FAERS Safety Report 13021201 (Version 1)
Quarter: 2016Q4

REPORT INFORMATION
  Report Type: Other
  Country: IR (occurrence: IR)
  Receive Date: 20161213
  Receipt Date: 20161213
  Transmission Date: 20170207
  Serious: Yes (Hospitalization)
  Sender: FDA-Public Use
  Company Number: IR-NOVEL LABORATORIES, INC-2016-04717

PATIENT
  Age: 25 Year
  Sex: Male
  Weight: 72.5 kg

DRUGS (1)
  1. CLOBETASOL [Suspect]
     Active Substance: CLOBETASOL
     Indication: DERMATITIS
     Route: 061

REACTIONS (1)
  - Cushing^s syndrome [Recovering/Resolving]
